FAERS Safety Report 17082492 (Version 1)
Quarter: 2019Q4

REPORT INFORMATION
  Report Type: Spontaneous
  Country: JP (occurrence: JP)
  Receive Date: 20191127
  Receipt Date: 20191127
  Transmission Date: 20200122
  Serious: Yes (Other)
  Sender: FDA-Public Use
  Company Number: JP-BAYER-2019-209566

PATIENT
  Age: 25 Year
  Sex: Female

DRUGS (1)
  1. YAZ [Suspect]
     Active Substance: DROSPIRENONE\ETHINYL ESTRADIOL
     Indication: PREMENSTRUAL SYNDROME

REACTIONS (3)
  - Anal abscess [None]
  - Off label use [None]
  - Product use in unapproved indication [None]

NARRATIVE: CASE EVENT DATE: 20191119
